FAERS Safety Report 8261170-0 (Version None)
Quarter: 2012Q2

REPORT INFORMATION
  Report Type: 
  Country: None (occurrence: None)
  Receive Date: 20120405
  Receipt Date: 20120328
  Transmission Date: 20120825
  Serious: Yes (Other)
  Sender: FDA-Public Use
  Company Number: US-US-EMD SERONO, INC.-7122691

PATIENT
  Sex: Female

DRUGS (4)
  1. VITAMIN D [Concomitant]
     Indication: OSTEOPOROSIS
  2. REBIF [Suspect]
     Indication: MULTIPLE SCLEROSIS
     Route: 058
     Dates: start: 20061218
  3. CALCIUM CARBONATE [Concomitant]
     Indication: OSTEOPOROSIS
  4. MUSCLE RELAXANTS [Concomitant]
     Indication: PRODUCT USED FOR UNKNOWN INDICATION

REACTIONS (7)
  - RIB FRACTURE [None]
  - OEDEMA PERIPHERAL [None]
  - FALL [None]
  - INJECTION SITE PAIN [None]
  - INJECTION SITE REACTION [None]
  - HYPERSENSITIVITY [None]
  - HEADACHE [None]
